FAERS Safety Report 24732710 (Version 1)
Quarter: 2024Q4

REPORT INFORMATION
  Report Type: Spontaneous
  Country: US (occurrence: None)
  Receive Date: 20241213
  Receipt Date: 20241213
  Transmission Date: 20250114
  Serious: Yes (Hospitalization)
  Sender: Public
  Company Number: None

PATIENT
  Age: 78 Year
  Sex: Male
  Weight: 110 kg

DRUGS (2)
  1. APIXABAN [Suspect]
     Active Substance: APIXABAN
     Indication: Atrial fibrillation
     Dosage: 5.00 MG TWICE A DAY ORAL?
     Route: 048
     Dates: start: 20241028, end: 20241103
  2. ASPIRIN [Suspect]
     Active Substance: ASPIRIN
     Indication: Cardiovascular event prophylaxis
     Dosage: 81.00 MG DAILY ORAL
     Route: 048
     Dates: end: 20241103

REACTIONS (1)
  - Duodenal ulcer haemorrhage [None]

NARRATIVE: CASE EVENT DATE: 20241103
